FAERS Safety Report 24375837 (Version 1)
Quarter: 2024Q3

REPORT INFORMATION
  Report Type: Spontaneous
  Country: US (occurrence: US)
  Receive Date: 20240928
  Receipt Date: 20240928
  Transmission Date: 20241016
  Serious: Yes (Death, Life-Threatening, Hospitalization)
  Sender: AMGEN
  Company Number: US-AMGEN-USASP2024192421

PATIENT
  Age: 77 Year
  Sex: Female

DRUGS (3)
  1. PREDNISONE [Suspect]
     Active Substance: PREDNISONE
     Indication: Autoimmune hepatitis
     Dosage: UNK
     Route: 065
  2. AZACITIDINE [Concomitant]
     Active Substance: AZACITIDINE
     Indication: Acute myeloid leukaemia
     Dosage: UNK
  3. VENETOCLAX [Concomitant]
     Active Substance: VENETOCLAX
     Indication: Acute myeloid leukaemia
     Dosage: UNK

REACTIONS (9)
  - Pneumonia aspiration [Fatal]
  - Febrile neutropenia [Unknown]
  - Bacteraemia [Unknown]
  - Stomatitis [Unknown]
  - Pulmonary haemorrhage [Unknown]
  - Respiratory failure [Unknown]
  - Pancytopenia [Unknown]
  - Arrhythmia [Unknown]
  - Off label use [Unknown]
